FAERS Safety Report 9692607 (Version 5)
Quarter: 2014Q1

REPORT INFORMATION
  Report Type: Spontaneous
  Country: GB (occurrence: GB)
  Receive Date: 20131118
  Receipt Date: 20140305
  Transmission Date: 20141002
  Serious: Yes (Hospitalization)
  Sender: FDA-Public Use
  Company Number: PHFR2013GB005535

PATIENT
  Age: 42 Year
  Sex: Male

DRUGS (6)
  1. CLOZARIL [Suspect]
     Indication: SCHIZOPHRENIA, PARANOID TYPE
     Dosage: UNK
     Route: 048
     Dates: start: 20051128
  2. CLOZARIL [Suspect]
     Indication: SCHIZOPHRENIA
     Dosage: 800 MG
     Route: 048
     Dates: end: 20131028
  3. AMISULPRIDE [Concomitant]
     Dosage: 1200 MG, UNK
     Route: 048
  4. REBOXETINE [Concomitant]
     Dosage: 12 MG, UNK
     Route: 048
  5. RIBAVIRIN [Concomitant]
     Dosage: 1200 MG, UNK
     Route: 048
  6. PEGINTERFERON [Concomitant]
     Dosage: 150 UG, WEEKLY
     Route: 058

REACTIONS (5)
  - Ankle fracture [Recovered/Resolved with Sequelae]
  - Haemoglobin decreased [Recovered/Resolved]
  - White blood cell count decreased [Recovered/Resolved]
  - Neutrophil count decreased [Recovered/Resolved]
  - Platelet count decreased [Recovered/Resolved]
